FAERS Safety Report 9188490 (Version 1)
Quarter: 2012Q4

REPORT INFORMATION
  Report Type: 
  Country: BR (occurrence: BR)
  Receive Date: 20121205
  Receipt Date: 20121205
  Transmission Date: 20130627
  Serious: Yes (Other)
  Sender: FDA-Public Use
  Company Number: PHHY2012BR111199

PATIENT
  Sex: Female

DRUGS (2)
  1. EXELON PATCH [Suspect]
     Dosage: 4.6 mg, QD
     Route: 062
     Dates: start: 20121031
  2. EXELON PATCH [Suspect]
     Dosage: 9.5 mg, Daily (18mg/10cm�)
     Route: 062

REACTIONS (1)
  - Glaucoma [Recovering/Resolving]
